FAERS Safety Report 5574074-9 (Version None)
Quarter: 2007Q4

REPORT INFORMATION
  Report Type: 
  Country: None (occurrence: None)
  Receive Date: 20071221
  Receipt Date: 20071219
  Transmission Date: 20080405
  Serious: Yes (Other)
  Sender: FDA-Public Use
  Company Number: 2007SP007861

PATIENT
  Age: 29 Year
  Sex: Male
  Weight: 61 kg

DRUGS (5)
  1. PEG-INTRON [Suspect]
     Indication: HEPATITIS C
     Dosage: 100 MCG; QW; SC
     Route: 058
     Dates: start: 20060701, end: 20060913
  2. REBETOL [Suspect]
     Indication: HEPATITIS C
     Dosage: 800 MCG; QW; SC
     Route: 058
     Dates: start: 20060701, end: 20060913
  3. VIDEX (CON.) [Concomitant]
  4. STOCRIN (CON.) [Concomitant]
  5. ZIAGEN (CON.) [Concomitant]

REACTIONS (4)
  - BLOOD BILIRUBIN INCREASED [None]
  - HEPATIC FUNCTION ABNORMAL [None]
  - JAUNDICE [None]
  - TRANSAMINASES INCREASED [None]
